FAERS Safety Report 5513538-0 (Version None)
Quarter: 2007Q4

REPORT INFORMATION
  Report Type: 
  Country: None (occurrence: None)
  Receive Date: 20071108
  Receipt Date: 20071031
  Transmission Date: 20080405
  Serious: Yes (Other)
  Sender: FDA-Public Use
  Company Number: 2007-04905

PATIENT
  Age: 54 Year
  Sex: Female

DRUGS (6)
  1. ANDRODERM [Suspect]
     Indication: HORMONE REPLACEMENT THERAPY
     Dosage: TROCHE
  2. PROGESTERONE IN OIL INJ [Suspect]
     Indication: HORMONE REPLACEMENT THERAPY
     Dosage: TROCHE
  3. ESTRADIOL [Suspect]
     Indication: HORMONE REPLACEMENT THERAPY
     Dosage: TROCHE
  4. ESTRONE [Suspect]
     Indication: HORMONE REPLACEMENT THERAPY
     Dosage: TROCHE
  5. ESTRIOL (ESTRIOL) [Suspect]
     Indication: HORMONE REPLACEMENT THERAPY
     Dosage: TROCHE
  6. DHEA(PRASTERONE) [Suspect]
     Indication: HORMONE REPLACEMENT THERAPY
     Dosage: TROCHE

REACTIONS (1)
  - ENDOMETRIAL CANCER STAGE I [None]
